FAERS Safety Report 17188165 (Version 3)
Quarter: 2020Q1

REPORT INFORMATION
  Report Type: Spontaneous
  Country: IT (occurrence: IT)
  Receive Date: 20191221
  Receipt Date: 20200109
  Transmission Date: 20200409
  Serious: Yes (Hospitalization)
  Sender: FDA-Public Use
  Company Number: IT-TEVA-2019-IT-1154544

PATIENT
  Age: 55 Year
  Sex: Male

DRUGS (3)
  1. LERCADIP [Suspect]
     Active Substance: LERCANIDIPINE HYDROCHLORIDE
     Indication: HYPERTENSION
     Dosage: 1 DOSAGE FORM
     Route: 048
     Dates: start: 20190101, end: 20191113
  2. TERAZOSIN HYDROCHLORIDE. [Suspect]
     Active Substance: TERAZOSIN HYDROCHLORIDE
     Indication: BENIGN PROSTATIC HYPERPLASIA
     Dosage: 0.5 DOSAGE FORM
     Route: 048
     Dates: start: 20191112, end: 20191112
  3. MOTILEX [Concomitant]

REACTIONS (3)
  - Nausea [Recovering/Resolving]
  - Headache [Recovering/Resolving]
  - Syncope [Recovering/Resolving]

NARRATIVE: CASE EVENT DATE: 20191113
